FAERS Safety Report 25275878 (Version 1)
Quarter: 2025Q2

REPORT INFORMATION
  Report Type: Report from Study
  Country: US (occurrence: US)
  Receive Date: 20250507
  Receipt Date: 20250507
  Transmission Date: 20250717
  Serious: Yes (Other)
  Sender: SUNOVION
  Company Number: US-SMPA-2025SPA005054

PATIENT

DRUGS (2)
  1. ORGOVYX [Suspect]
     Active Substance: RELUGOLIX
     Indication: Prostate cancer
     Dosage: 360 MG, SINGLE
     Route: 048
     Dates: start: 20250320, end: 20250320
  2. ORGOVYX [Suspect]
     Active Substance: RELUGOLIX
     Dosage: 120 MG, QD
     Dates: start: 20250321

REACTIONS (3)
  - Prostate infection [Unknown]
  - Fatigue [Unknown]
  - Hot flush [Unknown]
